FAERS Safety Report 6653730-5 (Version None)
Quarter: 2010Q1

REPORT INFORMATION
  Report Type: 
  Country: None (occurrence: None)
  Receive Date: 20100326
  Receipt Date: 20100322
  Transmission Date: 20100710
  Serious: Yes (Hospitalization)
  Sender: FDA-Public Use
  Company Number: US-BRISTOL-MYERS SQUIBB COMPANY-15027352

PATIENT
  Age: 79 Year
  Sex: Female

DRUGS (11)
  1. METOPROLOL TARTRATE [Suspect]
  2. ASPIRIN [Suspect]
     Indication: CEREBROVASCULAR ACCIDENT PROPHYLAXIS
  3. ALENDRONATE SODIUM [Concomitant]
     Route: 048
  4. ATORVASTATIN CALCIUM [Concomitant]
     Route: 048
  5. CALCIUM + VITAMIN D [Concomitant]
     Route: 048
  6. GLYBURIDE [Concomitant]
     Route: 048
  7. HYDROCHLOROTHIAZIDE [Concomitant]
     Route: 048
  8. LEVOTHYROXINE SODIUM [Concomitant]
     Route: 048
  9. LISINOPRIL [Concomitant]
     Route: 048
  10. METFORMIN HYDROCHLORIDE [Concomitant]
     Route: 048
  11. PAROXETINE HCL [Concomitant]
     Route: 048

REACTIONS (1)
  - EMBOLIC STROKE [None]
